FAERS Safety Report 5933823-8 (Version None)
Quarter: 2008Q4

REPORT INFORMATION
  Report Type: 
  Country: None (occurrence: None)
  Receive Date: 20081027
  Receipt Date: 20081013
  Transmission Date: 20090506
  Serious: Yes (Other)
  Sender: FDA-Public Use
  Company Number: US024712

PATIENT
  Age: 48 Year
  Sex: Male
  Weight: 130.1 kg

DRUGS (8)
  1. PROVIGIL [Suspect]
     Indication: SLEEP APNOEA SYNDROME
     Dosage: 200 MG QD ORAL
     Route: 048
     Dates: start: 20050101
  2. AMLODIPINE [Concomitant]
  3. BUSCOPAN /00008702/ [Concomitant]
  4. CODEINE PHOSPHATE [Concomitant]
  5. AMITRIPTYLINE HCL [Concomitant]
  6. RABEPRAZOLE SODIUM [Concomitant]
  7. VOLTAROL /00372302/ [Concomitant]
  8. LOPERAMIDE HCL [Concomitant]

REACTIONS (1)
  - PHAEOCHROMOCYTOMA [None]
